FAERS Safety Report 14362728 (Version 1)
Quarter: 2018Q1

REPORT INFORMATION
  Report Type: Spontaneous
  Country: US (occurrence: US)
  Receive Date: 20180108
  Receipt Date: 20180108
  Transmission Date: 20180509
  Serious: Yes (Hospitalization)
  Sender: FDA-Public Use
  Company Number: US-PFIZER INC-2018005087

PATIENT
  Age: 71 Year
  Sex: Female
  Weight: 122.47 kg

DRUGS (3)
  1. LYRICA [Suspect]
     Active Substance: PREGABALIN
     Indication: SKIN ULCER
     Dosage: 100 MG DOSE TWICE A DAY BY MOUTH
     Route: 048
     Dates: start: 201708
  2. LASILIX /00032601/ [Concomitant]
     Active Substance: FUROSEMIDE
  3. OXYCODONE [Concomitant]
     Active Substance: OXYCODONE

REACTIONS (6)
  - Confusional state [Unknown]
  - Product use in unapproved indication [Not Recovered/Not Resolved]
  - Somnolence [Unknown]
  - Withdrawal syndrome [Unknown]
  - Gastric haemorrhage [Unknown]
  - Irritability [Not Recovered/Not Resolved]

NARRATIVE: CASE EVENT DATE: 201708
